FAERS Safety Report 4487614-8 (Version None)
Quarter: 2004Q4

REPORT INFORMATION
  Report Type: 
  Country: None (occurrence: None)
  Receive Date: 20041025
  Receipt Date: 20041012
  Transmission Date: 20050328
  Serious: Yes (Other)
  Sender: FDA-Public Use
  Company Number: 2004077254

PATIENT
  Age: 44 Year
  Sex: Female
  Weight: 77.1115 kg

DRUGS (5)
  1. NEURONTIN [Suspect]
     Indication: PAIN
     Dosage: ORAL
     Route: 048
     Dates: start: 20030101
  2. FLUOXETINE HYDROCHLORIDE [Concomitant]
  3. MONTELUKAST SODIUM [Concomitant]
  4. BECLOMETHASONE DIPROPIONATE [Concomitant]
  5. FLUTICASONE PROPIONATE [Concomitant]

REACTIONS (5)
  - ABNORMAL DREAMS [None]
  - CRYING [None]
  - HYPOAESTHESIA [None]
  - LYME DISEASE [None]
  - PAIN [None]
